FAERS Safety Report 23989758 (Version 1)
Quarter: 2024Q2

REPORT INFORMATION
  Report Type: Spontaneous
  Country: ES (occurrence: ES)
  Receive Date: 20240619
  Receipt Date: 20240619
  Transmission Date: 20240716
  Serious: Yes (Other)
  Sender: FDA-Public Use
  Company Number: None

PATIENT
  Age: 85 Year
  Sex: Female
  Weight: 65 kg

DRUGS (13)
  1. GABAPENTIN [Suspect]
     Active Substance: GABAPENTIN
     Indication: Sciatica
     Dosage: MG IRREGULAR, GABAPENTIN TEVA EFG, 90 CAPSULES
     Route: 048
     Dates: start: 20240207, end: 20240525
  2. DIAZEPAM [Concomitant]
     Active Substance: DIAZEPAM
     Indication: Persistent depressive disorder
     Dosage: 5.0 MG CE, DIAZEPAM CINFA EFG, 40 TABLETS
     Route: 048
     Dates: start: 20231113
  3. CARVEDILOL CINFA [Concomitant]
     Indication: Essential hypertension
     Dosage: 12.5 MG EVERY 24 HOURS, CARVEDILOL CINFA EFG, 28 TABLETS
     Route: 048
     Dates: start: 20210215
  4. LEVOTHYROXINE SODIUM [Concomitant]
     Active Substance: LEVOTHYROXINE SODIUM
     Indication: Hypothyroidism
     Dosage: IRREGULAR MCG, EUTIROX 100 TABLETS
     Route: 048
     Dates: start: 20180601
  5. LEVOTHYROXINE SODIUM [Concomitant]
     Active Substance: LEVOTHYROXINE SODIUM
     Indication: Hypothyroidism
     Dosage: IRREGULAR MCG, EUTIROX 100 TABLETS
     Route: 048
     Dates: start: 20190207
  6. OMEPRAZOLE CINFAMED [Concomitant]
     Indication: Osteoarthritis
     Dosage: 20.0 MG A-DECE, OMEPRAZOLE CINFAMED EFG, 56 CAPSULES
     Route: 048
     Dates: start: 20090205
  7. BRINTELLIX [Concomitant]
     Active Substance: VORTIOXETINE HYDROBROMIDE
     Indication: Malaise
     Dosage: 15.0 MG DE, BRINTELLIX  28 TABLETS
     Route: 048
     Dates: start: 20230412
  8. AMLODIPINE BESYLATE [Concomitant]
     Active Substance: AMLODIPINE BESYLATE
     Indication: Essential hypertension
     Dosage: 2.5 MG Q24 H, AMLODIPINO CINFA EFG, 30 TABLETS
     Route: 048
     Dates: start: 20210901
  9. FLUTICASONE FUROATE [Concomitant]
     Active Substance: FLUTICASONE FUROATE
     Indication: Nasopharyngitis
     Dosage: 55.0 MCG C/24 H, AVAMYS 27.5 MICROGRAMS/SPRAY, SUSPENSION FOR NASAL SPRAY, 1 BOTTLE OF 120 SPRAYS
     Route: 045
     Dates: start: 20181214
  10. BUPROPION CINFA [Concomitant]
     Indication: Malaise
     Dosage: 150.0 MG DE, BUPROPION CINFA EFG , 30 TABLETS
     Route: 048
     Dates: start: 20231114
  11. PARACETAMOL CINFA [Concomitant]
     Indication: Osteoarthritis
     Dosage: 1.0 G DECOCE, PARACETAMOL CINFA EFG , 40 TABLETS
     Route: 048
     Dates: start: 20220617
  12. GELIDINA [Concomitant]
     Indication: Peripheral venous disease
     Dosage: 1.0 APPLIC C/12 H, GELIDINA, 1 TUBE OF 60 G
     Route: 061
     Dates: start: 20230328
  13. GLUFAN [Concomitant]
     Indication: Osteoarthritis
     Dosage: 625.0 MG DECE, GLUFAN  60 TABLETS
     Route: 048
     Dates: start: 20220628

REACTIONS (3)
  - Pharyngeal erythema [Recovering/Resolving]
  - Overdose [Recovering/Resolving]
  - Cough [Recovering/Resolving]

NARRATIVE: CASE EVENT DATE: 20240430
